FAERS Safety Report 19020475 (Version 1)
Quarter: 2021Q1

REPORT INFORMATION
  Report Type: Spontaneous
  Country: US (occurrence: US)
  Receive Date: 20210317
  Receipt Date: 20210317
  Transmission Date: 20210420
  Serious: No
  Sender: FDA-Public Use
  Company Number: US-TEVA-2021-US-1892485

PATIENT
  Sex: Male

DRUGS (1)
  1. CARBIDOPA /LEVODOPA [Suspect]
     Active Substance: CARBIDOPA\LEVODOPA
     Dosage: 25/100 MG
     Route: 065

REACTIONS (2)
  - Fine motor skill dysfunction [Unknown]
  - Product blister packaging issue [Unknown]
